APPROVED DRUG PRODUCT: SULFAMETHOXAZOLE AND TRIMETHOPRIM DOUBLE STRENGTH
Active Ingredient: SULFAMETHOXAZOLE; TRIMETHOPRIM
Strength: 800MG;160MG
Dosage Form/Route: TABLET;ORAL
Application: A070007 | Product #001
Applicant: MUTUAL PHARMACEUTICAL CO INC
Approved: Nov 14, 1984 | RLD: No | RS: No | Type: DISCN